FAERS Safety Report 15934021 (Version 1)
Quarter: 2019Q1

REPORT INFORMATION
  Report Type: Spontaneous
  Country: CN (occurrence: CN)
  Receive Date: 20190207
  Receipt Date: 20190207
  Transmission Date: 20190417
  Serious: Yes (Other)
  Sender: FDA-Public Use
  Company Number: PHHY2019CN028407

PATIENT

DRUGS (1)
  1. BENZYLPENICILLIN [Suspect]
     Active Substance: PENICILLIN G
     Indication: CONGENITAL SYPHILIS
     Dosage: 50000 U/KG
     Route: 042

REACTIONS (2)
  - Jarisch-Herxheimer reaction [Unknown]
  - Haematochezia [Unknown]
